FAERS Safety Report 5234426-3 (Version None)
Quarter: 2007Q1

REPORT INFORMATION
  Report Type: 
  Country: None (occurrence: None)
  Receive Date: 20070208
  Receipt Date: 20070208
  Transmission Date: 20070707
  Serious: Yes (Other)
  Sender: FDA-Public Use
  Company Number: None

PATIENT
  Age: 43 Year
  Sex: Female
  Weight: 110.2241 kg

DRUGS (4)
  1. ZOCOR [Suspect]
     Indication: DYSLIPIDAEMIA
     Dosage: 1 TAB PO QHS
     Route: 048
     Dates: start: 20060804
  2. HYZAAR [Concomitant]
  3. FLONASE [Concomitant]
  4. PRILOSEC OTC [Concomitant]

REACTIONS (2)
  - LIP SWELLING [None]
  - PRURITUS [None]
